FAERS Safety Report 7715206-3 (Version None)
Quarter: 2011Q3

REPORT INFORMATION
  Report Type: 
  Country: None (occurrence: None)
  Receive Date: 20110829
  Receipt Date: 20110820
  Transmission Date: 20111222
  Serious: Yes (Hospitalization, Other)
  Sender: FDA-Public Use
  Company Number: PHHY2011MX75295

PATIENT
  Sex: Female

DRUGS (8)
  1. THEOPHYLLINE [Concomitant]
     Indication: CHRONIC OBSTRUCTIVE PULMONARY DISEASE
     Dosage: 2 DF, UNK
  2. PROPRANOLOL [Concomitant]
     Dosage: 1 DF, UNK
     Dates: start: 20110701
  3. SPIRIVA [Concomitant]
     Indication: CHRONIC OBSTRUCTIVE PULMONARY DISEASE
     Dosage: 1 DF, UNK
  4. CONTROLIP [Concomitant]
     Indication: BLOOD CHOLESTEROL
     Dosage: 1 DF, UNK
     Dates: start: 20110701
  5. ONBREZ [Suspect]
     Dates: start: 20110820
  6. CLONAZEPAM [Concomitant]
     Dosage: 7 DRP, UNK
     Dates: start: 20110701
  7. LIPITOR [Concomitant]
     Indication: BLOOD CHOLESTEROL
     Dosage: 0.5 DF, UNK
     Dates: start: 20110701
  8. ONBREZ [Suspect]
     Indication: CHRONIC OBSTRUCTIVE PULMONARY DISEASE
     Dosage: 150 UG,(1 APPLICATION PER DAY)
     Dates: start: 20110401

REACTIONS (2)
  - MENINGIOMA [None]
  - INCORRECT ROUTE OF DRUG ADMINISTRATION [None]
